FAERS Safety Report 8594725-4 (Version None)
Quarter: 2012Q3

REPORT INFORMATION
  Report Type: 
  Country: None (occurrence: None)
  Receive Date: 20120801
  Receipt Date: 20120719
  Transmission Date: 20120928
  Serious: Yes (Death, Other)
  Sender: FDA-Public Use
  Company Number: FK201202021

PATIENT
  Age: 64 Year
  Sex: Male

DRUGS (4)
  1. CYCLOPHOSPHAMIDE [Concomitant]
  2. BORTEZOMIB [Suspect]
     Indication: LEUKAEMIA PLASMACYTIC
     Dosage: 1,3 MG/M2 I.V DAYS 1, 4 8, 11, INTRAVENOUS (NOT OTHERWISE SPECIFIED)
     Route: 042
  3. DEXAMETHASONE [Suspect]
     Indication: LEUKAEMIA PLASMACYTIC
     Dosage: 40 MG, DAYS 1, 2 4, 5-8, 9-11, 12, 40 MG, DAYS 1, 7, 14, 21
  4. LENALIDOMIDE [Suspect]
     Indication: LEUKAEMIA PLASMACYTIC
     Dosage: 25 MG, DAYS 1-14

REACTIONS (4)
  - PNEUMONIA [None]
  - DISEASE RECURRENCE [None]
  - LEUKAEMIA PLASMACYTIC [None]
  - NEUTROPENIA [None]
